FAERS Safety Report 16529061 (Version 1)
Quarter: 2019Q3

REPORT INFORMATION
  Report Type: Spontaneous
  Country: US (occurrence: US)
  Receive Date: 20190703
  Receipt Date: 20190703
  Transmission Date: 20191004
  Serious: No
  Sender: FDA-Public Use
  Company Number: US-ASCEND THERAPEUTICS-2070334

PATIENT
  Age: 66 Year
  Sex: Female

DRUGS (2)
  1. ESTROGEL [Suspect]
     Active Substance: ESTRADIOL
     Indication: MENOPAUSE
     Route: 062
     Dates: start: 201806, end: 201905
  2. PROGESTERONE. [Suspect]
     Active Substance: PROGESTERONE
     Route: 048
     Dates: start: 201806

REACTIONS (8)
  - Night sweats [Not Recovered/Not Resolved]
  - Sleep disorder [Not Recovered/Not Resolved]
  - Mood altered [Not Recovered/Not Resolved]
  - Product availability issue [None]
  - Hot flush [Not Recovered/Not Resolved]
  - Speech disorder [Not Recovered/Not Resolved]
  - Off label use [None]
  - Product dose omission [None]
